FAERS Safety Report 11121640 (Version 1)
Quarter: 2015Q2

REPORT INFORMATION
  Report Type: Spontaneous
  Country: US (occurrence: None)
  Receive Date: 20150518
  Receipt Date: 20150518
  Transmission Date: 20150821
  Serious: Yes (Hospitalization)
  Sender: FDA-Public Use
  Company Number: None

PATIENT
  Age: 25 Year
  Sex: Female
  Weight: 62.6 kg

DRUGS (3)
  1. NEXPLANON [Concomitant]
     Active Substance: ETONOGESTREL
  2. ZOLOFT [Concomitant]
     Active Substance: SERTRALINE HYDROCHLORIDE
  3. CLINDAMYCIN [Suspect]
     Active Substance: CLINDAMYCIN\CLINDAMYCIN PHOSPHATE
     Indication: TOOTH ABSCESS
     Dosage: TAKEN BY MOUTH

REACTIONS (2)
  - Colitis [None]
  - Clostridium test positive [None]

NARRATIVE: CASE EVENT DATE: 20150507
